FAERS Safety Report 20868904 (Version 1)
Quarter: 2022Q2

REPORT INFORMATION
  Report Type: Spontaneous
  Country: US (occurrence: None)
  Receive Date: 20220524
  Receipt Date: 20220524
  Transmission Date: 20220721
  Serious: Yes (Death)
  Sender: FDA-Public Use
  Company Number: None

PATIENT
  Age: 16 Year
  Sex: Female
  Weight: 99.38 kg

DRUGS (15)
  1. EVEROLIMUS [Suspect]
     Active Substance: EVEROLIMUS
     Indication: Brain neoplasm
     Dosage: FREQUENCY : DAILY;?
     Route: 048
  2. ALBUTEROL [Concomitant]
     Active Substance: ALBUTEROL
  3. AMLODIPINE [Concomitant]
     Active Substance: AMLODIPINE BESYLATE
  4. DEEP SEA NASAL [Concomitant]
  5. FERROUS SULFATE [Concomitant]
     Active Substance: FERROUS SULFATE
  6. FLONASE [Concomitant]
     Active Substance: FLUTICASONE PROPIONATE
  7. HYDROXYZINE [Concomitant]
     Active Substance: HYDROXYZINE HYDROCHLORIDE
  8. IBUPROFEN [Concomitant]
     Active Substance: IBUPROFEN
  9. NYSTATIN [Concomitant]
     Active Substance: NYSTATIN
  10. SCOPOLAMINE [Concomitant]
     Active Substance: SCOPOLAMINE
  11. TRIAMCINOLONE [Concomitant]
     Active Substance: TRIAMCINOLONE
  12. TYLENOL [Concomitant]
     Active Substance: ACETAMINOPHEN
  13. VITAMN D3 [Concomitant]
  14. ZOFRAN [Concomitant]
  15. ZYRTEC [Concomitant]
     Active Substance: CETIRIZINE HYDROCHLORIDE

REACTIONS (1)
  - Death [None]
